FAERS Safety Report 5735974-X (Version None)
Quarter: 2008Q2

REPORT INFORMATION
  Report Type: 
  Country: None (occurrence: None)
  Receive Date: 20080513
  Receipt Date: 20080506
  Transmission Date: 20081010
  Serious: Yes (Hospitalization)
  Sender: FDA-Public Use
  Company Number: ES-JNJFOC-20080501462

PATIENT
  Age: 31 Year
  Sex: Female

DRUGS (10)
  1. REMICADE [Suspect]
     Dosage: ONE DOSE
     Route: 042
  2. REMICADE [Suspect]
     Indication: CROHN'S DISEASE
     Route: 042
  3. ADALIMUMAB [Suspect]
     Indication: CROHN'S DISEASE
  4. METHOTREXATE [Suspect]
     Indication: CROHN'S DISEASE
     Dosage: SATURDAYS AND SUNDAYS
  5. SALAZOPYRIN [Concomitant]
  6. DEZACOR [Concomitant]
  7. OMEPRAZOLE [Concomitant]
  8. CALCIUM [Concomitant]
  9. DEPRAX [Concomitant]
  10. FOLIC ACID [Concomitant]

REACTIONS (3)
  - POLYSEROSITIS [None]
  - SYSTEMIC LUPUS ERYTHEMATOSUS [None]
  - TUBERCULOSIS [None]
